FAERS Safety Report 13085466 (Version 1)
Quarter: 2017Q1

REPORT INFORMATION
  Report Type: Spontaneous
  Country: US (occurrence: US)
  Receive Date: 20170104
  Receipt Date: 20170104
  Transmission Date: 20170428
  Serious: Yes (Other)
  Sender: FDA-Public Use
  Company Number: US-PFIZER INC-2016425197

PATIENT
  Age: 66 Year
  Sex: Female
  Weight: 83.45 kg

DRUGS (2)
  1. IBRANCE [Suspect]
     Active Substance: PALBOCICLIB
     Indication: BREAST CANCER FEMALE
     Dosage: 125 MG, CYCLIC (ONCE A DAY, THREE WEEKS ON AND ONE WEEK OFF)
     Dates: start: 201511
  2. LETROZOLE. [Concomitant]
     Active Substance: LETROZOLE
     Dosage: 2.5 MG, ONCE A DAY (FOR 28 DAYS)
     Route: 048

REACTIONS (1)
  - White blood cell count abnormal [Unknown]
